FAERS Safety Report 4428122-X (Version None)
Quarter: 2004Q3

REPORT INFORMATION
  Report Type: 
  Country: None (occurrence: None)
  Receive Date: 20040726
  Receipt Date: 20040405
  Transmission Date: 20050211
  Serious: No
  Sender: FDA-Public Use
  Company Number: USA031254561

PATIENT
  Age: 73 Year
  Sex: Female

DRUGS (7)
  1. FORTEO [Suspect]
     Indication: OSTEOPOROSIS
     Dosage: 20 UG DAY
     Dates: start: 20031121
  2. PREVACID [Concomitant]
  3. DIOVAN [Concomitant]
  4. POTASSIUM [Concomitant]
  5. CALCIUM [Concomitant]
  6. FAMOTIDINE [Concomitant]
  7. VALIUM [Concomitant]

REACTIONS (2)
  - BLOOD POTASSIUM INCREASED [None]
  - CONSTIPATION [None]
